FAERS Safety Report 8440602-9 (Version None)
Quarter: 2012Q2

REPORT INFORMATION
  Report Type: 
  Country: None (occurrence: None)
  Receive Date: 20120615
  Receipt Date: 20120613
  Transmission Date: 20120825
  Serious: No
  Sender: FDA-Public Use
  Company Number: US-BAYER-2012-059363

PATIENT
  Age: 77 Year
  Sex: Female
  Weight: 122 kg

DRUGS (8)
  1. POTASSIUM ACETATE [Concomitant]
  2. LEVOTHYROXINE SODIUM [Concomitant]
  3. ALEVE (CAPLET) [Suspect]
     Indication: ARTHRITIS
     Dosage: 1 DF, BID
     Route: 048
  4. FUROSEMIDE [Concomitant]
  5. SPIRONOLACTONE [Concomitant]
  6. CAPTOPRIL [Concomitant]
  7. HYDROXYZINE [Concomitant]
  8. IRON [Concomitant]

REACTIONS (2)
  - SOMNOLENCE [None]
  - FATIGUE [None]
